FAERS Safety Report 9833489 (Version 1)
Quarter: 2014Q1

REPORT INFORMATION
  Report Type: Spontaneous
  Country: IT (occurrence: IT)
  Receive Date: 20140122
  Receipt Date: 20140122
  Transmission Date: 20141002
  Serious: Yes (Other)
  Sender: FDA-Public Use
  Company Number: IT-ROCHE-1333546

PATIENT
  Age: 61 Year
  Sex: Male

DRUGS (6)
  1. BEVACIZUMAB [Suspect]
     Indication: METASTATIC RENAL CELL CARCINOMA
     Route: 065
     Dates: start: 201003, end: 201201
  2. INTERFERON ALFA-2A [Suspect]
     Indication: METASTATIC RENAL CELL CARCINOMA
     Dosage: 6 MU
     Route: 065
     Dates: start: 201003, end: 201105
  3. SUNITINIB [Suspect]
     Indication: METASTATIC RENAL CELL CARCINOMA
     Dosage: FOR 4 WEEKS EVERY 6 WEEKS
     Route: 065
     Dates: start: 201205
  4. SORAFENIB [Suspect]
     Indication: METASTATIC RENAL CELL CARCINOMA
     Route: 065
     Dates: start: 201210
  5. AXITINIB [Suspect]
     Indication: METASTATIC RENAL CELL CARCINOMA
     Dosage: WITH FOOD FOR ONE MONTH
     Route: 065
     Dates: start: 201211
  6. AXITINIB [Suspect]
     Route: 065
     Dates: end: 201311

REACTIONS (5)
  - Proteinuria [Unknown]
  - Asthenia [Unknown]
  - Rash [Unknown]
  - Hypertension [Unknown]
  - Disease progression [Unknown]
